FAERS Safety Report 8918051 (Version 1)
Quarter: 2012Q4

REPORT INFORMATION
  Report Type: 
  Country: US (occurrence: US)
  Receive Date: 20121120
  Receipt Date: 20121120
  Transmission Date: 20130627
  Serious: No
  Sender: FDA-Public Use
  Company Number: US-ASTRAZENECA-2012SE12608

PATIENT
  Age: 58 Year
  Sex: Female

DRUGS (8)
  1. NEXIUM [Suspect]
     Dosage: TAKING ONE CAPSULE OF NEXIUM
     Route: 048
  2. NEXIUM [Suspect]
     Dosage: TAKING TWO PILLS OF NEXIUM DAILY, ONE AT BREAKFAST AND OTHER AT DINNER
     Route: 048
  3. METOPROLOL [Concomitant]
  4. GLIPIZIDE [Concomitant]
  5. NORTRYPTYLAL [Concomitant]
  6. METFORMIN [Concomitant]
  7. WARFARIN [Concomitant]
  8. PRAVASTATIN [Concomitant]

REACTIONS (4)
  - Pain [Unknown]
  - Abdominal discomfort [Unknown]
  - Drug dose omission [Unknown]
  - Drug effect decreased [Unknown]
